FAERS Safety Report 10623005 (Version 4)
Quarter: 2017Q4

REPORT INFORMATION
  Report Type: Spontaneous
  Country: US (occurrence: US)
  Receive Date: 20141203
  Receipt Date: 20171123
  Transmission Date: 20180320
  Serious: No
  Sender: FDA-Public Use
  Company Number: US-JNJFOC-20141109683

PATIENT
  Sex: Male

DRUGS (6)
  1. RISPERDAL [Suspect]
     Active Substance: RISPERIDONE
     Indication: BIPOLAR DISORDER
     Dosage: 0.25 MG, 0.5 MG AND 1 MG
     Route: 048
     Dates: start: 20050824, end: 20090430
  2. RISPERDAL [Suspect]
     Active Substance: RISPERIDONE
     Indication: DEPRESSION
     Dosage: 0.25 MG, 0.5 MG AND 1 MG
     Route: 048
     Dates: start: 20050824, end: 20090430
  3. RISPERDAL [Suspect]
     Active Substance: RISPERIDONE
     Indication: ATTENTION DEFICIT/HYPERACTIVITY DISORDER
     Dosage: 0.25 MG, 0.5 MG AND 1 MG
     Route: 048
     Dates: start: 20050824, end: 20090430
  4. RISPERIDONE. [Suspect]
     Active Substance: RISPERIDONE
     Indication: ABNORMAL BEHAVIOUR
     Dosage: 0.5 MG, 1 MG, 2 MG, AND 3 MG.
     Route: 048
     Dates: start: 20080815, end: 20100219
  5. RISPERIDONE. [Suspect]
     Active Substance: RISPERIDONE
     Indication: ATTENTION DEFICIT/HYPERACTIVITY DISORDER
     Dosage: 0.5 MG, 1 MG, 2 MG, AND 3 MG.
     Route: 048
     Dates: start: 20080815, end: 20100219
  6. RISPERDAL [Suspect]
     Active Substance: RISPERIDONE
     Indication: ABNORMAL BEHAVIOUR
     Dosage: 0.25 MG, 0.5 MG AND 1 MG
     Route: 048
     Dates: start: 20050824, end: 20090430

REACTIONS (5)
  - Abnormal weight gain [Unknown]
  - Galactorrhoea [Unknown]
  - Emotional disorder [Unknown]
  - Gynaecomastia [Unknown]
  - Hyperprolactinaemia [Unknown]
